FAERS Safety Report 24393093 (Version 2)
Quarter: 2024Q4

REPORT INFORMATION
  Report Type: Report from Study
  Country: US (occurrence: US)
  Receive Date: 20241003
  Receipt Date: 20241121
  Transmission Date: 20250114
  Serious: Yes (Other)
  Sender: UCB
  Company Number: US-UCBSA-2024050000

PATIENT
  Sex: Male
  Weight: 157 kg

DRUGS (7)
  1. BRIVARACETAM [Suspect]
     Active Substance: BRIVARACETAM
     Indication: Seizure
     Dosage: 50 MILLIGRAM, 2X/DAY (BID)
     Route: 048
     Dates: start: 2024
  2. BRIVARACETAM [Suspect]
     Active Substance: BRIVARACETAM
     Dosage: 75 MILLIGRAM, 2X/DAY (BID)
     Route: 048
     Dates: start: 2024
  3. AZITHROMYCIN [Concomitant]
     Active Substance: AZITHROMYCIN
     Indication: Product used for unknown indication
     Dosage: 2 TABLETS ON DAY 1 AND 1 TABLET DAILY
     Route: 048
     Dates: start: 20240918
  4. ACETYLCYSTEINE\LEVOMEFOLATE CALCIUM\METHYLCOBALAMIN [Concomitant]
     Active Substance: ACETYLCYSTEINE\LEVOMEFOLATE CALCIUM\METHYLCOBALAMIN
     Indication: Dementia
     Dosage: UNK
     Route: 048
     Dates: start: 20240912
  5. FLUTICASONE PROPIONATE [Concomitant]
     Active Substance: FLUTICASONE PROPIONATE
     Indication: Product used for unknown indication
     Dosage: UNK
     Route: 045
     Dates: start: 20240918
  6. SULFASALAZINE [Concomitant]
     Active Substance: SULFASALAZINE
     Indication: Product used for unknown indication
     Dosage: ONE TABLET TWICE A DAY FOR 1 TO 2 WEEKS,TWO TABLETS TWICE A DAY
     Route: 048
     Dates: start: 20240817
  7. TRIAMCINOLONE ACETONIDE [Concomitant]
     Active Substance: TRIAMCINOLONE ACETONIDE
     Indication: Condition aggravated
     Dosage: UNK
     Route: 061
     Dates: start: 20240118

REACTIONS (6)
  - Seizure [Unknown]
  - Dementia [Not Recovered/Not Resolved]
  - Altered state of consciousness [Unknown]
  - Dementia Alzheimer^s type [Not Recovered/Not Resolved]
  - Transient epileptic amnesia [Not Recovered/Not Resolved]
  - White matter lesion [Unknown]

NARRATIVE: CASE EVENT DATE: 20240101
